FAERS Safety Report 5016548-5 (Version None)
Quarter: 2006Q2

REPORT INFORMATION
  Report Type: 
  Country: None (occurrence: None)
  Receive Date: 20060602
  Receipt Date: 20060523
  Transmission Date: 20061013
  Serious: Yes (Hospitalization)
  Sender: FDA-Public Use
  Company Number: FR-JNJFOC-20060505180

PATIENT
  Age: 80 Year
  Sex: Female
  Weight: 53 kg

DRUGS (17)
  1. DURAGESIC-100 [Suspect]
     Route: 062
  2. MORPHINE SULFATE [Suspect]
     Indication: DRUG USE FOR UNKNOWN INDICATION
     Route: 065
  3. HALDOL [Concomitant]
     Route: 065
  4. NOROXIN [Concomitant]
     Route: 065
  5. ACTRAPID [Concomitant]
     Indication: DIABETES MELLITUS
     Route: 065
  6. CARDENSIEL [Concomitant]
     Route: 065
  7. LASILIX [Concomitant]
     Route: 065
  8. DIFFU-K [Concomitant]
     Route: 065
  9. MOPRAL [Concomitant]
     Route: 065
  10. DI-ANTALVIC [Concomitant]
     Route: 065
  11. DI-ANTALVIC [Concomitant]
     Route: 065
  12. PLAVIX [Concomitant]
     Route: 065
  13. SINTROM [Concomitant]
     Route: 065
  14. FORLAX [Concomitant]
     Route: 065
  15. FUMAFER [Concomitant]
     Route: 065
  16. ASPIRIN [Concomitant]
     Route: 065
  17. FONZYLANE [Concomitant]
     Route: 065

REACTIONS (6)
  - BLOOD GLUCOSE DECREASED [None]
  - BLOOD PRESSURE DECREASED [None]
  - CONFUSIONAL STATE [None]
  - DELUSION [None]
  - FATIGUE [None]
  - SOMNOLENCE [None]
